FAERS Safety Report 9125059 (Version 1)
Quarter: 2013Q1

REPORT INFORMATION
  Report Type: Report from Study
  Country: NL (occurrence: NL)
  Receive Date: 20130227
  Receipt Date: 20130227
  Transmission Date: 20140127
  Serious: Yes (Other)
  Sender: FDA-Public Use
  Company Number: NL-ABBOTT-12P-114-1009591-00

PATIENT
  Age: 0 None
  Sex: Male
  Weight: 3.81 kg

DRUGS (4)
  1. SYNAGIS [Suspect]
     Indication: PREMATURE BABY
     Route: 030
     Dates: start: 20120920, end: 20120920
  2. SYNAGIS [Suspect]
     Indication: BRONCHOPULMONARY DYSPLASIA
     Dates: start: 20121018, end: 20121018
  3. SYNAGIS [Suspect]
     Indication: DIAPHRAGMATIC HERNIA
     Route: 030
     Dates: start: 20121116
  4. FORLAX [Concomitant]
     Indication: PRODUCT USED FOR UNKNOWN INDICATION

REACTIONS (2)
  - Pneumonia [Recovered/Resolved]
  - Dyspnoea [Recovered/Resolved]
